FAERS Safety Report 7167849-6 (Version None)
Quarter: 2010Q4

REPORT INFORMATION
  Report Type: 
  Country: None (occurrence: None)
  Receive Date: 20101202
  Receipt Date: 20101118
  Transmission Date: 20110411
  Serious: Yes (Other)
  Sender: FDA-Public Use
  Company Number: US-1183180

PATIENT
  Age: 78 Year
  Sex: Female
  Weight: 56.246 kg

DRUGS (1)
  1. TRAVATAN [Suspect]
     Indication: GLAUCOMA
     Dosage: (1 GTT QD OU OPHTHALMIC)
     Route: 047
     Dates: start: 20100201

REACTIONS (6)
  - DRY EYE [None]
  - ENTROPION [None]
  - EYE IRRITATION [None]
  - FOREIGN BODY SENSATION IN EYES [None]
  - GROWTH OF EYELASHES [None]
  - TRICHIASIS [None]
